FAERS Safety Report 23778786 (Version 1)
Quarter: 2024Q2

REPORT INFORMATION
  Report Type: Spontaneous
  Country: CN (occurrence: CN)
  Receive Date: 20240424
  Receipt Date: 20240424
  Transmission Date: 20240715
  Serious: Yes (Hospitalization, Other)
  Sender: FDA-Public Use
  Company Number: CN-009507513-2404CHN010142

PATIENT
  Age: 54 Year
  Sex: Male
  Weight: 65 kg

DRUGS (3)
  1. KEYTRUDA [Suspect]
     Active Substance: PEMBROLIZUMAB
     Indication: Hypopharyngeal cancer
     Dosage: 100 MG, ONCE
     Route: 041
     Dates: start: 20240315, end: 20240315
  2. RALTITREXED [Suspect]
     Active Substance: RALTITREXED
     Indication: Hypopharyngeal cancer
     Dosage: 4 MG, QD
     Route: 041
     Dates: start: 20240315, end: 20240315
  3. CISPLATIN [Suspect]
     Active Substance: CISPLATIN
     Indication: Hypopharyngeal cancer
     Dosage: 40 MG, QD
     Route: 041
     Dates: start: 20240315, end: 20240316

REACTIONS (3)
  - Myelosuppression [Recovering/Resolving]
  - Product use issue [Unknown]
  - Incorrect dose administered [Unknown]

NARRATIVE: CASE EVENT DATE: 20240315
